FAERS Safety Report 13850488 (Version 2)
Quarter: 2017Q4

REPORT INFORMATION
  Report Type: Report from Study
  Country: DE (occurrence: DE)
  Receive Date: 20170809
  Receipt Date: 20171027
  Transmission Date: 20180320
  Serious: Yes (Hospitalization)
  Sender: FDA-Public Use
  Company Number: DE-INCYTE CORPORATION-2017IN005508

PATIENT

DRUGS (8)
  1. PURINETHOL [Concomitant]
     Active Substance: MERCAPTOPURINE
     Indication: MYELODYSPLASTIC SYNDROME
     Dosage: 50 MG, QD (1-0-0)
     Route: 065
     Dates: start: 20140415
  2. ALLOPURINOL. [Concomitant]
     Active Substance: ALLOPURINOL
     Indication: PRODUCT USED FOR UNKNOWN INDICATION
     Dosage: 100 OT, QD
     Route: 065
  3. JAKAVI [Suspect]
     Active Substance: RUXOLITINIB
     Indication: MYELODYSPLASTIC SYNDROME
     Dosage: 10 OT, BID
     Route: 065
     Dates: start: 20151222
  4. EXJADE [Suspect]
     Active Substance: DEFERASIROX
     Dosage: 360 MG, QD  (6.5 MG/KG, B/1 DF OF 360 MG))
     Route: 048
     Dates: start: 20170929
  5. CONCOR COR [Concomitant]
     Active Substance: BISOPROLOL FUMARATE
     Indication: ATRIAL FLUTTER
     Dosage: UNK UNK, BID
     Route: 065
  6. KEPPRA [Concomitant]
     Active Substance: LEVETIRACETAM
     Indication: SEIZURE
     Dosage: 750 OT, BID (PER DAY 2)
     Route: 065
  7. EXJADE [Suspect]
     Active Substance: DEFERASIROX
     Indication: MYELODYSPLASTIC SYNDROME
     Dosage: UNK
     Route: 065
     Dates: start: 20140415
  8. EXJADE [Suspect]
     Active Substance: DEFERASIROX
     Dosage: 720 MG, QD (13MG/KG B/2 DF OF 360 MG)
     Route: 048
     Dates: start: 20170621, end: 20170928

REACTIONS (3)
  - Herpes zoster [Recovered/Resolved]
  - General physical health deterioration [Not Recovered/Not Resolved]
  - Product use in unapproved indication [Unknown]

NARRATIVE: CASE EVENT DATE: 20151222
